FAERS Safety Report 7631310-2 (Version None)
Quarter: 2011Q3

REPORT INFORMATION
  Report Type: 
  Country: None (occurrence: None)
  Receive Date: 20110715
  Receipt Date: 20110708
  Transmission Date: 20111222
  Serious: Yes (Other)
  Sender: FDA-Public Use
  Company Number: ACO_25627_2011

PATIENT
  Age: 68 Year
  Sex: Female

DRUGS (7)
  1. AMPYRA [Suspect]
     Indication: GAIT DISTURBANCE
     Dosage: 10 MG, BID, ORAL
     Route: 048
     Dates: start: 20110108, end: 20110607
  2. AMPYRA [Suspect]
  3. AMPYRA [Suspect]
  4. ERGOCALCIFEROL [Concomitant]
  5. COUMADIN [Concomitant]
  6. METFORMIN HCL [Concomitant]
  7. ROPINIROLE [Concomitant]

REACTIONS (4)
  - CONVULSION [None]
  - STARING [None]
  - LOSS OF CONSCIOUSNESS [None]
  - SCREAMING [None]
